FAERS Safety Report 24926340 (Version 1)
Quarter: 2025Q1

REPORT INFORMATION
  Report Type: Spontaneous
  Country: US (occurrence: US)
  Receive Date: 20250205
  Receipt Date: 20250205
  Transmission Date: 20250408
  Serious: Yes (Other)
  Sender: ROCHE
  Company Number: US-ROCHE-10000194014

PATIENT
  Sex: Female

DRUGS (6)
  1. ACTEMRA ACTPEN [Suspect]
     Active Substance: TOCILIZUMAB
     Indication: Senile osteoporosis
     Route: 058
  2. ELIQUIS [Concomitant]
     Active Substance: APIXABAN
  3. MELOXICAM [Concomitant]
     Active Substance: MELOXICAM
  4. METFORMIN [Concomitant]
     Active Substance: METFORMIN HYDROCHLORIDE
  5. MIRAPEX ER [Concomitant]
     Active Substance: PRAMIPEXOLE DIHYDROCHLORIDE
  6. PROLIA [Concomitant]
     Active Substance: DENOSUMAB

REACTIONS (2)
  - Giant cell arteritis [Unknown]
  - Anti-neutrophil cytoplasmic antibody positive vasculitis [Unknown]
